FAERS Safety Report 4945630-3 (Version None)
Quarter: 2006Q1

REPORT INFORMATION
  Report Type: 
  Country: None (occurrence: None)
  Receive Date: 20060316
  Receipt Date: 20060214
  Transmission Date: 20060701
  Serious: Yes (Other)
  Sender: FDA-Public Use
  Company Number: NL-MERCK-0602NLD00025

PATIENT
  Age: 68 Year
  Sex: Female

DRUGS (1)
  1. VYTORIN [Suspect]
     Indication: HYPERCHOLESTEROLAEMIA
     Route: 048
     Dates: start: 20050930, end: 20051117

REACTIONS (4)
  - ALOPECIA [None]
  - ANGIONEUROTIC OEDEMA [None]
  - ASTHENIA [None]
  - DIPLOPIA [None]
